FAERS Safety Report 5566710-8 (Version None)
Quarter: 2007Q4

REPORT INFORMATION
  Report Type: 
  Country: None (occurrence: None)
  Receive Date: 20071219
  Receipt Date: 20071210
  Transmission Date: 20080405
  Serious: Yes (Hospitalization)
  Sender: FDA-Public Use
  Company Number: AU-AMGEN-QUU256177

PATIENT
  Age: 41 Year
  Sex: Male

DRUGS (5)
  1. NEULASTA [Suspect]
     Indication: CHEMOTHERAPY
     Route: 058
     Dates: start: 20070616, end: 20070616
  2. DOXORUBICIN HYDROCHLORIDE [Concomitant]
     Route: 042
     Dates: start: 20070612, end: 20070612
  3. VINCRISTINE [Concomitant]
     Route: 042
     Dates: start: 20070612, end: 20070612
  4. ETOPOSIDE [Concomitant]
     Route: 042
     Dates: start: 20070612, end: 20070615
  5. IFOSFAMIDE [Concomitant]
     Route: 042
     Dates: start: 20070612, end: 20070615

REACTIONS (2)
  - DRUG INEFFECTIVE [None]
  - FEBRILE NEUTROPENIA [None]
